FAERS Safety Report 25382184 (Version 1)
Quarter: 2025Q2

REPORT INFORMATION
  Report Type: Spontaneous
  Country: US (occurrence: US)
  Receive Date: 20250531
  Receipt Date: 20250531
  Transmission Date: 20250716
  Serious: No
  Sender: GLAXOSMITHKLINE
  Company Number: US-GSK-US2025067639

PATIENT
  Age: 58 Year
  Sex: Male

DRUGS (4)
  1. NUCALA [Suspect]
     Active Substance: MEPOLIZUMAB
     Indication: Asthma
     Dates: start: 202501
  2. TRIAMCINOLONE ACETONIDE [Concomitant]
     Active Substance: TRIAMCINOLONE ACETONIDE
     Indication: Asthma
     Dosage: 200 MG, QD
  3. ALBUTEROL [Concomitant]
     Active Substance: ALBUTEROL
     Indication: Asthma
  4. DUONEB [Concomitant]
     Active Substance: ALBUTEROL SULFATE\IPRATROPIUM BROMIDE
     Indication: Asthma

REACTIONS (4)
  - Norovirus infection [Not Recovered/Not Resolved]
  - Dysphonia [Unknown]
  - Illness [Unknown]
  - Lung disorder [Unknown]

NARRATIVE: CASE EVENT DATE: 20250501
